FAERS Safety Report 5651964-X (Version None)
Quarter: 2008Q1

REPORT INFORMATION
  Report Type: 
  Country: None (occurrence: None)
  Receive Date: 20080131
  Receipt Date: 20071106
  Transmission Date: 20080703
  Serious: No
  Sender: FDA-Public Use
  Company Number: US200711001718

PATIENT
  Age: 39 Year
  Sex: Female
  Weight: 79.4 kg

DRUGS (6)
  1. BYETTA [Suspect]
     Indication: WEIGHT CONTROL
     Dosage: 5 UG, 2/D, SUBCUTANEOUS; 15 UG, DAILY (1/D), SUBCUTANEOUS
     Route: 058
     Dates: start: 20071106, end: 20071106
  2. BYETTA [Suspect]
     Indication: WEIGHT CONTROL
     Dosage: 5 UG, 2/D, SUBCUTANEOUS; 15 UG, DAILY (1/D), SUBCUTANEOUS
     Route: 058
     Dates: start: 20071106
  3. EXENATIDE 5MCG PEN, DISPOSABLE DEVICE (EXENATIDE PEN (5MCG)) PEN,DISPO [Concomitant]
  4. ONE-A-DAY (MINERALS NOS, VITAMINS NOS) [Concomitant]
  5. ASCORBIC ACID [Concomitant]
  6. ZOLOFT [Concomitant]

REACTIONS (3)
  - FEELING JITTERY [None]
  - INCORRECT DOSE ADMINISTERED [None]
  - NAUSEA [None]
